FAERS Safety Report 7126187-8 (Version None)
Quarter: 2010Q4

REPORT INFORMATION
  Report Type: 
  Country: None (occurrence: None)
  Receive Date: 20101129
  Receipt Date: 20101117
  Transmission Date: 20110411
  Serious: Yes (Hospitalization, Other)
  Sender: FDA-Public Use
  Company Number: AU-JNJFOC-20101007401

PATIENT
  Age: 17 Year
  Sex: Female

DRUGS (2)
  1. RISPERDAL [Suspect]
     Indication: BORDERLINE PERSONALITY DISORDER
     Route: 048
  2. RISPERDAL [Suspect]
     Dosage: 80 TO 120 MG
     Route: 048

REACTIONS (3)
  - ELECTROCARDIOGRAM QT PROLONGED [None]
  - INTENTIONAL OVERDOSE [None]
  - TACHYCARDIA [None]
